FAERS Safety Report 9442273 (Version 1)
Quarter: 2013Q3

REPORT INFORMATION
  Report Type: Spontaneous
  Country: US (occurrence: US)
  Receive Date: 20130806
  Receipt Date: 20130806
  Transmission Date: 20140515
  Serious: No
  Sender: FDA-Public Use
  Company Number: US-GLAXOSMITHKLINE-A0981297A

PATIENT
  Age: 67 Year
  Sex: Female

DRUGS (11)
  1. ADVAIR [Suspect]
     Indication: DYSPNOEA
     Dosage: 1PUFF PER DAY
     Route: 055
     Dates: start: 20120531
  2. PREDNISONE [Concomitant]
  3. BENICAR [Concomitant]
  4. PROTONIX [Concomitant]
  5. METOPROLOL [Concomitant]
  6. BUPROPION [Concomitant]
  7. LOMOTIL [Concomitant]
  8. IPRATROPIUM BROMIDE [Concomitant]
  9. LOVENOX [Concomitant]
  10. LEVEMIR [Concomitant]
  11. PERCOCET [Concomitant]

REACTIONS (1)
  - Blood glucose increased [Not Recovered/Not Resolved]
